FAERS Safety Report 5751753-1 (Version None)
Quarter: 2008Q2

REPORT INFORMATION
  Report Type: 
  Country: None (occurrence: None)
  Receive Date: 20080529
  Receipt Date: 20080520
  Transmission Date: 20081010
  Serious: Yes (Other)
  Sender: FDA-Public Use
  Company Number: KR-JNJFOC-20080504103

PATIENT
  Sex: Male

DRUGS (5)
  1. CONCERTA [Suspect]
     Route: 048
  2. CONCERTA [Suspect]
     Route: 048
  3. CONCERTA [Suspect]
     Indication: ATTENTION DEFICIT/HYPERACTIVITY DISORDER
     Route: 048
  4. UNSATURATED FATTY ACID [Concomitant]
     Indication: MEDICAL DIET
  5. VITAMIN TAB [Concomitant]
     Indication: MEDICAL DIET

REACTIONS (3)
  - ABNORMAL BEHAVIOUR [None]
  - GASTROINTESTINAL DISORDER [None]
  - LOSS OF CONSCIOUSNESS [None]
